FAERS Safety Report 11104405 (Version 1)
Quarter: 2015Q2

REPORT INFORMATION
  Report Type: Spontaneous
  Country: US (occurrence: US)
  Receive Date: 20150511
  Receipt Date: 20150511
  Transmission Date: 20150821
  Serious: Yes (Other)
  Sender: FDA-Public Use
  Company Number: US-PFIZER INC-2015152565

PATIENT
  Age: 25 Year
  Sex: Male

DRUGS (1)
  1. DILANTIN [Suspect]
     Active Substance: PHENYTOIN
     Dosage: 100 MG, 2X/DAY (STRENGTH: 100MG; DIRECTIONS: 2 BID)

REACTIONS (2)
  - Activities of daily living impaired [Unknown]
  - Seizure [Unknown]
